FAERS Safety Report 13646495 (Version 1)
Quarter: 2017Q2

REPORT INFORMATION
  Report Type: Spontaneous
  Country: US (occurrence: US)
  Receive Date: 20170613
  Receipt Date: 20170613
  Transmission Date: 20170830
  Serious: No
  Sender: FDA-Public Use
  Company Number: US-PFIZER INC-2017251989

PATIENT
  Sex: Male

DRUGS (1)
  1. CHANTIX [Suspect]
     Active Substance: VARENICLINE TARTRATE
     Dosage: TAKING IT TWICE A DAY AND WEAN OFF A LITTLE BIT
     Dates: start: 2017, end: 20170605

REACTIONS (6)
  - Emotional disorder [Unknown]
  - Drug withdrawal syndrome [Unknown]
  - Aggression [Unknown]
  - Weight increased [Unknown]
  - Libido disorder [Unknown]
  - Anger [Unknown]

NARRATIVE: CASE EVENT DATE: 2017
